FAERS Safety Report 19097284 (Version 1)
Quarter: 2021Q2

REPORT INFORMATION
  Report Type: Report from Study
  Country: US (occurrence: US)
  Receive Date: 20210406
  Receipt Date: 20210406
  Transmission Date: 20210717
  Serious: Yes (Death, Other)
  Sender: FDA-Public Use
  Company Number: US-GILEAD-2021-0524004

PATIENT
  Age: 37 Year
  Sex: Female

DRUGS (11)
  1. BENADRYL [Concomitant]
     Active Substance: DIPHENHYDRAMINE HYDROCHLORIDE
  2. VELETRI [Concomitant]
     Active Substance: EPOPROSTENOL
  3. VITAMIN D3 [Concomitant]
     Active Substance: CHOLECALCIFEROL
  4. ADCIRCA [Suspect]
     Active Substance: TADALAFIL
     Indication: PULMONARY ARTERIAL HYPERTENSION
     Dosage: 40 MG, QD
     Route: 065
     Dates: start: 20150316
  5. COUMADIN [Concomitant]
     Active Substance: WARFARIN SODIUM
  6. FERROUS FUMARA [Concomitant]
  7. CLARITINE [Concomitant]
     Active Substance: LORATADINE
  8. AMBRISENTAN [Suspect]
     Active Substance: AMBRISENTAN
     Indication: PULMONARY ARTERIAL HYPERTENSION
     Dosage: 10 MG, QD
     Route: 065
     Dates: start: 20130801
  9. CALCIUM [Concomitant]
     Active Substance: CALCIUM
  10. DIGOXIN. [Concomitant]
     Active Substance: DIGOXIN
  11. PROBIOTICA [Concomitant]
     Active Substance: PROBIOTICS NOS

REACTIONS (1)
  - Death [Fatal]
